FAERS Safety Report 18322282 (Version 1)
Quarter: 2020Q3

REPORT INFORMATION
  Report Type: Spontaneous
  Country: CN (occurrence: CN)
  Receive Date: 20200928
  Receipt Date: 20200928
  Transmission Date: 20201103
  Serious: Yes (Other)
  Sender: FDA-Public Use
  Company Number: CN-JNJFOC-20200931081

PATIENT

DRUGS (3)
  1. DEXAMETHASONE. [Suspect]
     Active Substance: DEXAMETHASONE
     Indication: PLASMA CELL MYELOMA
     Route: 065
  2. DARZALEX [Suspect]
     Active Substance: DARATUMUMAB
     Indication: PLASMA CELL MYELOMA
     Dosage: 16MG/KG WEEKLY FOR 8 WEEKS, FOLLOWED BY EVERY OTHER WEEK FOR 8 DOSES, AND THEN EVERY 4 WEEKS
     Route: 042
  3. IXAZOMIB [Suspect]
     Active Substance: IXAZOMIB
     Indication: PLASMA CELL MYELOMA
     Dosage: ON DAYS 1, 8 , 15
     Route: 048

REACTIONS (17)
  - Infection [Unknown]
  - Neutropenia [Unknown]
  - Thrombocytopenia [Unknown]
  - Skin disorder [Unknown]
  - Nausea [Unknown]
  - Skin infection [Unknown]
  - Lymphopenia [Unknown]
  - Vomiting [Unknown]
  - Diarrhoea [Unknown]
  - Oedema peripheral [Unknown]
  - Abdominal distension [Unknown]
  - Constipation [Unknown]
  - Rash [Unknown]
  - Hypokalaemia [Unknown]
  - Pneumonia [Unknown]
  - Anaemia [Unknown]
  - Fatigue [Unknown]
